FAERS Safety Report 12703340 (Version 1)
Quarter: 2016Q3

REPORT INFORMATION
  Report Type: Spontaneous
  Country: FR (occurrence: FR)
  Receive Date: 20160831
  Receipt Date: 20160831
  Transmission Date: 20161109
  Serious: Yes (Congenital Anomaly)
  Sender: FDA-Public Use
  Company Number: FR-ABBVIE-16P-056-1714971-00

PATIENT
  Sex: Male

DRUGS (1)
  1. DEPAKINE [Suspect]
     Active Substance: VALPROATE SODIUM
     Indication: MATERNAL EXPOSURE TIMING UNSPECIFIED
     Route: 064

REACTIONS (8)
  - Joint swelling [Unknown]
  - Mouth ulceration [Not Recovered/Not Resolved]
  - Fatigue [Not Recovered/Not Resolved]
  - Dyspraxia [Not Recovered/Not Resolved]
  - Epilepsy [Not Recovered/Not Resolved]
  - Foetal exposure during pregnancy [Unknown]
  - Skin ulcer [Not Recovered/Not Resolved]
  - Dysgraphia [Not Recovered/Not Resolved]
